FAERS Safety Report 6838813-9 (Version None)
Quarter: 2010Q3

REPORT INFORMATION
  Report Type: 
  Country: None (occurrence: None)
  Receive Date: 20100709
  Receipt Date: 20100623
  Transmission Date: 20110219
  Serious: Yes (Congenital Anomaly, Other)
  Sender: FDA-Public Use
  Company Number: 1000014899

PATIENT
  Sex: 0

DRUGS (3)
  1. CITALOPRAM HYDROBROMIDE [Suspect]
     Dosage: TRANSPLACENTAL
     Route: 064
  2. FOLIC ACID [Concomitant]
  3. MECLIZINE HYDROCHLORIDE [Concomitant]

REACTIONS (2)
  - CHOANAL ATRESIA [None]
  - MATERNAL DRUGS AFFECTING FOETUS [None]
